FAERS Safety Report 5032952-3 (Version None)
Quarter: 2006Q2

REPORT INFORMATION
  Report Type: 
  Country: None (occurrence: None)
  Receive Date: 20060622
  Receipt Date: 20060619
  Transmission Date: 20061013
  Serious: Yes (Other)
  Sender: FDA-Public Use
  Company Number: US-JNJFOC-20060302461

PATIENT
  Sex: Male

DRUGS (6)
  1. RISPERDAL CONSTA [Suspect]
     Indication: BIPOLAR DISORDER
     Route: 030
  2. KLONOPIN [Concomitant]
     Indication: ANXIETY
     Route: 048
  3. FLONASE [Concomitant]
     Indication: ASTHMA
     Route: 045
  4. IBUPROFEN [Concomitant]
     Indication: PAIN
     Route: 048
  5. PERCOCET [Concomitant]
     Route: 048
  6. PERCOCET [Concomitant]
     Indication: PAIN
     Route: 048

REACTIONS (2)
  - HEMIANOPIA [None]
  - RETINAL ARTERY OCCLUSION [None]
